FAERS Safety Report 20586938 (Version 1)
Quarter: 2022Q1

REPORT INFORMATION
  Report Type: Spontaneous
  Country: US (occurrence: US)
  Receive Date: 20220314
  Receipt Date: 20220314
  Transmission Date: 20220423
  Serious: Yes (Other)
  Sender: FDA-Public Use
  Company Number: US-SA-SAC20220309001802

PATIENT
  Age: 46 Year
  Sex: Female

DRUGS (4)
  1. TAXOTERE [Suspect]
     Active Substance: DOCETAXEL
     Indication: HER2 positive breast cancer
     Dosage: UNK
     Dates: start: 20161106
  2. HERCEPTIN [Concomitant]
     Active Substance: TRASTUZUMAB
  3. PERJETA [Concomitant]
     Active Substance: PERTUZUMAB
  4. CARBOPLATIN [Concomitant]
     Active Substance: CARBOPLATIN

REACTIONS (11)
  - Deep vein thrombosis [Unknown]
  - Neuropathy peripheral [Unknown]
  - Cognitive disorder [Unknown]
  - Alopecia [Unknown]
  - Fatigue [Unknown]
  - Nausea [Unknown]
  - Vomiting [Unknown]
  - Epistaxis [Unknown]
  - Illness [Unknown]
  - Weight decreased [Unknown]
  - Asthenia [Unknown]

NARRATIVE: CASE EVENT DATE: 20160101
